FAERS Safety Report 23405886 (Version 1)
Quarter: 2024Q1

REPORT INFORMATION
  Report Type: Spontaneous
  Country: US (occurrence: US)
  Receive Date: 20240116
  Receipt Date: 20240116
  Transmission Date: 20240410
  Serious: No
  Sender: FDA-Public Use
  Company Number: US-HALOZYME THERAPEUTICS, INC.-2022-US-HYL-03531

PATIENT

DRUGS (3)
  1. HYLENEX RECOMBINANT [Suspect]
     Active Substance: HYALURONIDASE (HUMAN RECOMBINANT)
     Indication: Dermal filler overcorrection
     Dosage: 20 UNITS OF HYLENEX ON THE LEFT SIDE OF HER UPPER LIP AND 25 UNITS ON THE RIGHT SIDE OF HER UPPER LI
     Route: 058
     Dates: start: 20221122, end: 20221122
  2. HYLENEX RECOMBINANT [Suspect]
     Active Substance: HYALURONIDASE (HUMAN RECOMBINANT)
     Dosage: 30 UNITS OF HYLENEX ON 07-DEC-2022
     Dates: start: 20221207, end: 20221207
  3. HYALURONIC ACID [Suspect]
     Active Substance: HYALURONIC ACID
     Indication: Dermal filler injection
     Dosage: UNK
     Dates: start: 20221122

REACTIONS (2)
  - Facial paralysis [Not Recovered/Not Resolved]
  - Off label use [None]

NARRATIVE: CASE EVENT DATE: 20221122
